FAERS Safety Report 16293770 (Version 5)
Quarter: 2020Q3

REPORT INFORMATION
  Report Type: Spontaneous
  Country: IL (occurrence: IL)
  Receive Date: 20190509
  Receipt Date: 20200817
  Transmission Date: 20201102
  Serious: Yes (Hospitalization)
  Sender: FDA-Public Use
  Company Number: IL-SHIRE-IL201906454

PATIENT

DRUGS (4)
  1. GATTEX [Suspect]
     Active Substance: TEDUGLUTIDE\WATER
     Indication: SHORT-BOWEL SYNDROME
     Dosage: 0.09 MILLILITER, UNKNOWN
     Route: 065
     Dates: start: 20190203
  2. GATTEX [Suspect]
     Active Substance: TEDUGLUTIDE\WATER
     Indication: SHORT-BOWEL SYNDROME
     Dosage: 0.09 MILLILITER, UNKNOWN
     Route: 065
     Dates: start: 20190203
  3. GATTEX [Suspect]
     Active Substance: TEDUGLUTIDE\WATER
     Indication: SHORT-BOWEL SYNDROME
     Dosage: 0.09 MILLILITER, UNKNOWN
     Route: 065
     Dates: start: 20190203
  4. GATTEX [Suspect]
     Active Substance: TEDUGLUTIDE\WATER
     Indication: SHORT-BOWEL SYNDROME
     Dosage: 0.09 MILLILITER, UNKNOWN
     Route: 065
     Dates: start: 20190203

REACTIONS (4)
  - Pyrexia [Not Recovered/Not Resolved]
  - Kidney enlargement [Unknown]
  - Upper limb fracture [Unknown]
  - Chills [Not Recovered/Not Resolved]

NARRATIVE: CASE EVENT DATE: 20190214
